FAERS Safety Report 5000870-2 (Version None)
Quarter: 2006Q2

REPORT INFORMATION
  Report Type: 
  Country: None (occurrence: None)
  Receive Date: 20060512
  Receipt Date: 20050323
  Transmission Date: 20061013
  Serious: No
  Sender: FDA-Public Use
  Company Number: US-GLAXOSMITHKLINE-A0551020A

PATIENT
  Age: 50 Year
  Sex: Female

DRUGS (3)
  1. RELAFEN [Suspect]
     Indication: RHEUMATOID ARTHRITIS
     Dosage: 750MG TWICE PER DAY
     Route: 048
  2. M.V.I. [Concomitant]
  3. CALCIUM GLUCONATE [Concomitant]

REACTIONS (2)
  - DRUG INEFFECTIVE [None]
  - SOMNOLENCE [None]
